FAERS Safety Report 14284789 (Version 2)
Quarter: 2018Q1

REPORT INFORMATION
  Report Type: Spontaneous
  Country: SE (occurrence: SE)
  Receive Date: 20171214
  Receipt Date: 20180125
  Transmission Date: 20180509
  Serious: Yes (Other)
  Sender: FDA-Public Use
  Company Number: SE-NOVOPROD-576193

PATIENT
  Age: 73 Year
  Sex: Male

DRUGS (1)
  1. VICTOZA [Suspect]
     Active Substance: LIRAGLUTIDE
     Indication: DIABETES MELLITUS
     Dosage: UNK
     Route: 065
     Dates: end: 20171110

REACTIONS (6)
  - Weight decreased [Unknown]
  - Syncope [Unknown]
  - Fall [Unknown]
  - Nausea [Unknown]
  - Decreased appetite [Unknown]
  - Tooth injury [Unknown]
